FAERS Safety Report 23439610 (Version 1)
Quarter: 2024Q1

REPORT INFORMATION
  Report Type: Spontaneous
  Country: US (occurrence: None)
  Receive Date: 20240124
  Receipt Date: 20240124
  Transmission Date: 20240409
  Serious: Yes (Other)
  Sender: FDA-Public Use
  Company Number: None

PATIENT
  Age: 9 Year
  Sex: Male
  Weight: 54.2 kg

DRUGS (2)
  1. ALTUVIIIO [Suspect]
     Active Substance: EFANESOCTOCOG ALFA
     Indication: Factor VIII deficiency
     Dosage: OTHER FREQUENCY : ONCE WEEKLY;?
     Route: 042
     Dates: start: 20240104, end: 20240122
  2. Hemlibra 165 mg SQ every 2 weeks [Concomitant]
     Dates: start: 20181008, end: 20231224

REACTIONS (9)
  - Agitation [None]
  - Flushing [None]
  - Dry mouth [None]
  - Lip dry [None]
  - Dyspnoea [None]
  - Hypoxia [None]
  - Bradycardia [None]
  - Infusion related reaction [None]
  - Therapy interrupted [None]

NARRATIVE: CASE EVENT DATE: 20240122
